FAERS Safety Report 10555873 (Version 1)
Quarter: 2014Q4

REPORT INFORMATION
  Report Type: Spontaneous
  Country: US (occurrence: US)
  Receive Date: 20141030
  Receipt Date: 20141030
  Transmission Date: 20150529
  Serious: Yes (Other)
  Sender: FDA-Public Use
  Company Number: US-GILEAD-2014-0120484

PATIENT
  Age: 70 Year
  Sex: Female

DRUGS (5)
  1. PLANT FUSION WITH PROTEIN POWDER [Concomitant]
  2. SEA VEG [Concomitant]
  3. VIBRANCE GREEN [Concomitant]
  4. HARVONI [Suspect]
     Active Substance: LEDIPASVIR\SOFOSBUVIR
     Indication: PRODUCT USED FOR UNKNOWN INDICATION
     Dosage: UNK
     Route: 065
  5. MORINGA [Concomitant]

REACTIONS (1)
  - Swelling face [Unknown]
